FAERS Safety Report 16008967 (Version 2)
Quarter: 2019Q2

REPORT INFORMATION
  Report Type: Other
  Country: CA (occurrence: CA)
  Receive Date: 20190224
  Receipt Date: 20190410
  Transmission Date: 20190711
  Serious: Yes (Other)
  Sender: FDA-Public Use
  Company Number: CA-APOTEX-2019AP008087

PATIENT
  Age: 49 Year
  Sex: Male

DRUGS (2)
  1. SALBUTAMOL [Suspect]
     Active Substance: ALBUTEROL
     Indication: PRODUCT USED FOR UNKNOWN INDICATION
     Dosage: UNK
     Route: 065
  2. AVAMYS [Suspect]
     Active Substance: FLUTICASONE FUROATE
     Indication: ASTHMA
     Dosage: 27.5 ?G, UNK
     Route: 065

REACTIONS (15)
  - Asthma [Recovered/Resolved]
  - Nasal septum deviation [Recovered/Resolved]
  - Sleep apnoea syndrome [Recovered/Resolved]
  - Obsessive-compulsive disorder [Recovered/Resolved]
  - Body dysmorphic disorder [Recovered/Resolved]
  - Borderline personality disorder [Recovered/Resolved]
  - Intervertebral disc protrusion [Recovered/Resolved]
  - Deafness [Recovered/Resolved]
  - Post-traumatic stress disorder [Recovered/Resolved]
  - Alcoholism [Recovered/Resolved]
  - Therapeutic product effect incomplete [Recovered/Resolved]
  - Pain [Recovered/Resolved]
  - Autism spectrum disorder [Recovered/Resolved]
  - Binge eating [Recovered/Resolved]
  - Anxiety [Recovered/Resolved]
